FAERS Safety Report 7442817-5 (Version None)
Quarter: 2011Q2

REPORT INFORMATION
  Report Type: 
  Country: None (occurrence: None)
  Receive Date: 20110428
  Receipt Date: 20110422
  Transmission Date: 20111010
  Serious: Yes (Death, Other)
  Sender: FDA-Public Use
  Company Number: JP-JNJFOC-20110410622

PATIENT
  Sex: Female
  Weight: 53 kg

DRUGS (3)
  1. LEUSTATIN [Suspect]
     Indication: HAIRY CELL LEUKAEMIA
     Route: 042
  2. KYTRIL [Concomitant]
     Indication: PROPHYLAXIS OF NAUSEA AND VOMITING
     Route: 041
  3. KYTRIL [Concomitant]
     Route: 041

REACTIONS (5)
  - HAIRY CELL LEUKAEMIA [None]
  - PLATELET COUNT DECREASED [None]
  - BLOOD SODIUM DECREASED [None]
  - BLOOD BILIRUBIN INCREASED [None]
  - WHITE BLOOD CELL COUNT DECREASED [None]
